FAERS Safety Report 14145766 (Version 1)
Quarter: 2017Q4

REPORT INFORMATION
  Report Type: Spontaneous
  Country: IN (occurrence: IN)
  Receive Date: 20171031
  Receipt Date: 20171031
  Transmission Date: 20180321
  Serious: Yes (Death, Hospitalization)
  Sender: FDA-Public Use
  Company Number: IN-PFIZER INC-2017468048

PATIENT
  Age: 59 Year
  Sex: Female

DRUGS (2)
  1. INLYTA [Suspect]
     Active Substance: AXITINIB
     Indication: METASTATIC RENAL CELL CARCINOMA
     Dosage: 5 MG, 2X/DAY
     Route: 048
     Dates: start: 20160814
  2. EVERTOR [Suspect]
     Active Substance: EVEROLIMUS
     Dosage: UNK

REACTIONS (3)
  - Cardiac disorder [Unknown]
  - Neoplasm progression [Fatal]
  - Restlessness [Unknown]
